FAERS Safety Report 10252968 (Version 1)
Quarter: 2014Q2

REPORT INFORMATION
  Report Type: Spontaneous
  Country: US (occurrence: None)
  Receive Date: 20140618
  Receipt Date: 20140618
  Transmission Date: 20141212
  Serious: Yes (Other)
  Sender: FDA-Public Use
  Company Number: None

PATIENT
  Age: 82 Year
  Sex: Male
  Weight: 107.96 kg

DRUGS (12)
  1. CLOPIDOGREL [Suspect]
     Indication: ANTICOAGULANT THERAPY
     Route: 048
     Dates: end: 20140504
  2. CLOPIDOGREL [Suspect]
     Route: 048
     Dates: end: 20140504
  3. AMIODARONE [Concomitant]
  4. ASPIRIN [Concomitant]
  5. PLAVIX [Concomitant]
  6. CYTOMEL [Concomitant]
  7. HCTZ [Concomitant]
  8. VICODIN [Concomitant]
  9. VALIUM [Concomitant]
  10. TESTOSTERONE [Concomitant]
  11. PROGESTERONE [Concomitant]
  12. DIOVAN [Concomitant]

REACTIONS (3)
  - Throat irritation [None]
  - Dysphonia [None]
  - Product quality issue [None]
